FAERS Safety Report 7104113-5 (Version None)
Quarter: 2010Q4

REPORT INFORMATION
  Report Type: 
  Country: None (occurrence: None)
  Receive Date: 20101115
  Receipt Date: 20100526
  Transmission Date: 20110411
  Serious: No
  Sender: FDA-Public Use
  Company Number: US-ALLERGAN-1006937US

PATIENT
  Age: 41 Year
  Sex: Female

DRUGS (1)
  1. BOTOX COSMETIC [Suspect]
     Indication: SKIN WRINKLING
     Dosage: 1 UNITS, SINGLE
     Dates: start: 20100526, end: 20100526

REACTIONS (5)
  - DIZZINESS [None]
  - EPISTAXIS [None]
  - HAEMOPTYSIS [None]
  - PALPITATIONS [None]
  - PRODUCT TASTE ABNORMAL [None]
